FAERS Safety Report 19110231 (Version 1)
Quarter: 2021Q2

REPORT INFORMATION
  Report Type: Spontaneous
  Country: US (occurrence: US)
  Receive Date: 20210409
  Receipt Date: 20210409
  Transmission Date: 20210717
  Serious: Yes (Other)
  Sender: FDA-Public Use
  Company Number: US-BRISTOL-MYERS SQUIBB COMPANY-BMS-2021-025981

PATIENT
  Age: 19 Year

DRUGS (3)
  1. NIVOLUMAB [Suspect]
     Active Substance: NIVOLUMAB
     Indication: HEPATOCELLULAR CARCINOMA
     Dosage: 3 MILLIGRAM/KILOGRAM, DAY 1; EVERY CYCLE
     Route: 042
  2. 5?FU [FLUOROURACIL] [Concomitant]
     Active Substance: FLUOROURACIL
     Indication: HEPATOCELLULAR CARCINOMA
     Dosage: 200 MG/M2 CONTINUOUS INFUSION DAYS 1?7
     Route: 065
  3. INTERFERON [Concomitant]
     Active Substance: INTERFERON
     Indication: HEPATOCELLULAR CARCINOMA
     Dosage: 4 MILLION UNITS/M2, DAYS 1, 3, 5, AND 7
     Route: 058

REACTIONS (2)
  - Colitis [Unknown]
  - Off label use [Unknown]
